FAERS Safety Report 21438907 (Version 2)
Quarter: 2022Q4

REPORT INFORMATION
  Report Type: Spontaneous
  Country: US (occurrence: US)
  Receive Date: 20221011
  Receipt Date: 20221020
  Transmission Date: 20230113
  Serious: Yes (Other)
  Sender: FDA-Public Use
  Company Number: US-NOVARTISPH-NVSC2022US226203

PATIENT
  Age: 87 Year
  Sex: Male

DRUGS (15)
  1. TOBRAMYCIN [Suspect]
     Active Substance: TOBRAMYCIN
     Indication: Necrotising scleritis
     Dosage: 15 MILLIGRAM PER MILLILITRE(HOURLY)
     Route: 061
  2. TOBRAMYCIN [Suspect]
     Active Substance: TOBRAMYCIN
     Indication: Pseudomonas infection
  3. TOBRAMYCIN [Suspect]
     Active Substance: TOBRAMYCIN
     Indication: Infective scleritis
  4. MOXIFLOXACIN [Suspect]
     Active Substance: MOXIFLOXACIN
     Indication: Pseudomonas infection
     Dosage: UNK(HOURLY)
     Route: 061
  5. MOXIFLOXACIN [Suspect]
     Active Substance: MOXIFLOXACIN
     Indication: Necrotising scleritis
  6. MOXIFLOXACIN [Suspect]
     Active Substance: MOXIFLOXACIN
     Indication: Infective scleritis
  7. CIPROFLOXACIN [Suspect]
     Active Substance: CIPROFLOXACIN
     Indication: Pseudomonas infection
     Dosage: 500 MG, BID
     Route: 048
  8. CIPROFLOXACIN [Suspect]
     Active Substance: CIPROFLOXACIN
     Indication: Necrotising scleritis
  9. CIPROFLOXACIN [Suspect]
     Active Substance: CIPROFLOXACIN
     Indication: Infective scleritis
  10. CYCLOPENTOLATE [Suspect]
     Active Substance: CYCLOPENTOLATE
     Indication: Pseudomonas infection
     Dosage: UNK, BID
     Route: 065
  11. CYCLOPENTOLATE [Suspect]
     Active Substance: CYCLOPENTOLATE
     Indication: Necrotising scleritis
  12. CYCLOPENTOLATE [Suspect]
     Active Substance: CYCLOPENTOLATE
     Indication: Infective scleritis
  13. LOTEPREDNOL [Suspect]
     Active Substance: LOTEPREDNOL
     Indication: Pseudomonas infection
     Dosage: UNK, QID
     Route: 061
  14. LOTEPREDNOL [Suspect]
     Active Substance: LOTEPREDNOL
     Indication: Necrotising scleritis
  15. LOTEPREDNOL [Suspect]
     Active Substance: LOTEPREDNOL
     Indication: Infective scleritis

REACTIONS (6)
  - Necrotising scleritis [Unknown]
  - Infective scleritis [Unknown]
  - Pseudomonas infection [Unknown]
  - Disease progression [Unknown]
  - Toxicity to various agents [Unknown]
  - Product use in unapproved indication [Unknown]
